FAERS Safety Report 4443368-2 (Version None)
Quarter: 2004Q3

REPORT INFORMATION
  Report Type: 
  Country: None (occurrence: None)
  Receive Date: 20040901
  Receipt Date: 20040817
  Transmission Date: 20050211
  Serious: Yes (Hospitalization)
  Sender: FDA-Public Use
  Company Number: 04P-163-0255941-00

PATIENT
  Age: 65 Year
  Sex: Female
  Weight: 54.4316 kg

DRUGS (12)
  1. HUMIRA [Suspect]
     Indication: RHEUMATOID ARTHRITIS
     Dosage: SEE IMAGE
     Route: 058
     Dates: start: 20040211, end: 20040225
  2. HUMIRA [Suspect]
     Indication: RHEUMATOID ARTHRITIS
     Dosage: SEE IMAGE
     Route: 058
     Dates: start: 20040301
  3. ETANERCEPT [Suspect]
     Indication: RHEUMATOID ARTHRITIS
     Dosage: 25 MG, 2 IN 1 WK, SUBCUTANEOUS
     Route: 058
     Dates: start: 20030304, end: 20040201
  4. METHOTREXATE [Concomitant]
  5. PREDNISONE [Concomitant]
  6. MELOXICAM [Concomitant]
  7. FOLIC ACID [Concomitant]
  8. LEVOTHYROXINE SODIUM [Concomitant]
  9. VENLAFAXINE HCL [Concomitant]
  10. PRINZIDE [Concomitant]
  11. ATENOLOL [Concomitant]
  12. METHACHOLINE CHLORIDE [Concomitant]

REACTIONS (4)
  - ABDOMINAL PAIN [None]
  - CONSTIPATION [None]
  - CORONARY ARTERY DISEASE [None]
  - PULMONARY OEDEMA [None]
